FAERS Safety Report 11820478 (Version 1)
Quarter: 2015Q4

REPORT INFORMATION
  Report Type: Spontaneous
  Country: CA (occurrence: None)
  Receive Date: 20151209
  Receipt Date: 20151209
  Transmission Date: 20160305
  Serious: No
  Sender: FDA-Public Use
  Company Number: None

PATIENT
  Age: 56 Year
  Sex: Male
  Weight: 95.71 kg

DRUGS (5)
  1. METFORMIN [Suspect]
     Active Substance: METFORMIN HYDROCHLORIDE
     Indication: TYPE 2 DIABETES MELLITUS
     Dosage: 2 PILLS 2X A DAY TOTAL 4 = 2 G
     Route: 048
  2. GLUCOSAMINE SULPHATE [Concomitant]
     Active Substance: GLUCOSAMINE
  3. ASPIRIN. [Concomitant]
     Active Substance: ASPIRIN
  4. BETA BLOCKERS [Concomitant]
  5. METFORMIN [Suspect]
     Active Substance: METFORMIN HYDROCHLORIDE
     Indication: DIABETES MELLITUS
     Dosage: 2 PILLS 2X A DAY TOTAL 4 = 2 G
     Route: 048

REACTIONS (6)
  - Dysgeusia [None]
  - Abnormal dreams [None]
  - Confusional state [None]
  - Depression [None]
  - Decreased appetite [None]
  - Abdominal discomfort [None]

NARRATIVE: CASE EVENT DATE: 20151208
